FAERS Safety Report 23040468 (Version 1)
Quarter: 2023Q4

REPORT INFORMATION
  Report Type: Spontaneous
  Country: US (occurrence: None)
  Receive Date: 20231006
  Receipt Date: 20231006
  Transmission Date: 20240110
  Serious: Yes (Other)
  Sender: FDA-Public Use
  Company Number: 2023A225106

PATIENT

DRUGS (2)
  1. CALQUENCE [Suspect]
     Active Substance: ACALABRUTINIB
     Route: 048
  2. CALQUENCE [Suspect]
     Active Substance: ACALABRUTINIB
     Route: 048

REACTIONS (5)
  - Headache [Recovering/Resolving]
  - Bone pain [Recovering/Resolving]
  - Neck pain [Recovering/Resolving]
  - Vertigo [Recovering/Resolving]
  - Impaired quality of life [Recovering/Resolving]
